FAERS Safety Report 9173418 (Version 1)
Quarter: 2013Q1

REPORT INFORMATION
  Report Type: Spontaneous
  Country: US (occurrence: None)
  Receive Date: 20130314
  Receipt Date: 20130314
  Transmission Date: 20140127
  Serious: Yes (Other)
  Sender: FDA-Public Use
  Company Number: 2013-03816

PATIENT
  Age: 15 Year
  Sex: 0

DRUGS (1)
  1. GLIBENCLAMIDE [Suspect]
     Indication: PRODUCT USED FOR UNKNOWN INDICATION
     Route: 048

REACTIONS (3)
  - Hypoglycaemia [None]
  - Suicide attempt [None]
  - Overdose [None]
